FAERS Safety Report 26082948 (Version 1)
Quarter: 2025Q4

REPORT INFORMATION
  Report Type: Spontaneous
  Country: EU (occurrence: EU)
  Receive Date: 20251124
  Receipt Date: 20251124
  Transmission Date: 20260118
  Serious: Yes (Hospitalization, Other)
  Sender: SANDOZ
  Company Number: EU-MLMSERVICE-20250807-PI607196-00232-1

PATIENT
  Age: 44 Year
  Sex: Female

DRUGS (8)
  1. MYCOPHENOLATE MOFETIL [Suspect]
     Active Substance: MYCOPHENOLATE MOFETIL
     Dosage: RESTORED TO 1 G BID
     Route: 065
  2. MYCOPHENOLATE MOFETIL [Suspect]
     Active Substance: MYCOPHENOLATE MOFETIL
     Indication: Immunosuppressant drug therapy
     Dosage: 1 G, INTERVAL (12 D)
     Route: 065
  3. MYCOPHENOLATE MOFETIL [Suspect]
     Active Substance: MYCOPHENOLATE MOFETIL
     Dosage: TEMPORARILY REDUCED TO 500 MG BID
     Route: 065
  4. METHYLPREDNISOLONE [Suspect]
     Active Substance: METHYLPREDNISOLONE
     Indication: Immunosuppressant drug therapy
     Dosage: IN THE FIRST THREE MONTHS, THEN TAPERED TO 4 MG/DAY GRADUALLY
     Route: 065
  5. METHYLPREDNISOLONE [Suspect]
     Active Substance: METHYLPREDNISOLONE
     Indication: Immunosuppression
     Dosage: IN THE FIRST THREE MONTHS, THEN TAPERED TO 4 MG/DAY GRADUALLY
     Route: 065
  6. PREDNISONE [Suspect]
     Active Substance: PREDNISONE
     Indication: Immunosuppression
     Dosage: 4 MG, QD
     Route: 065
  7. TACROLIMUS [Suspect]
     Active Substance: TACROLIMUS
     Indication: Immunosuppressant drug therapy
     Dosage: TARGET TROUGH LEVEL 10?12 NG/ML IN THE  FIRST THREE MONTHS, THEN REDUCED TO 8?10 NG/ML)
     Route: 065
  8. TACROLIMUS [Suspect]
     Active Substance: TACROLIMUS
     Indication: Immunosuppression

REACTIONS (10)
  - Acute kidney injury [Unknown]
  - Pneumonia influenzal [Unknown]
  - Colitis [Unknown]
  - Diarrhoea [Unknown]
  - BK virus infection [Recovered/Resolved]
  - BK virus infection [Recovered/Resolved]
  - Polyomavirus viraemia [Recovered/Resolved]
  - Polyomavirus-associated nephropathy [Recovered/Resolved]
  - Infection [Recovered/Resolved]
  - Toxicity to various agents [Unknown]

NARRATIVE: CASE EVENT DATE: 20200801
